FAERS Safety Report 9753789 (Version 1)
Quarter: 2013Q4

REPORT INFORMATION
  Report Type: Spontaneous
  Country: US (occurrence: US)
  Receive Date: 20131213
  Receipt Date: 20131213
  Transmission Date: 20140711
  Serious: No
  Sender: FDA-Public Use
  Company Number: US-GILEAD-2010-0027044

PATIENT
  Age: 74 Year
  Sex: Female

DRUGS (12)
  1. LETAIRIS [Suspect]
     Indication: PULMONARY ARTERIAL HYPERTENSION
     Route: 048
     Dates: start: 20100119
  2. LOTEMAX [Concomitant]
  3. VYTORIN [Concomitant]
  4. SYNTHROID [Concomitant]
  5. PRILOSEC [Concomitant]
  6. CLARITIN [Concomitant]
  7. NASONEX [Concomitant]
  8. ADVAIR [Concomitant]
  9. ASPIRIN [Concomitant]
  10. MVI [Concomitant]
  11. OMEGA 3 [Concomitant]
  12. TYLENOL [Concomitant]

REACTIONS (2)
  - Orbital oedema [Not Recovered/Not Resolved]
  - Oedema peripheral [Not Recovered/Not Resolved]
